FAERS Safety Report 10799873 (Version 1)
Quarter: 2015Q1

REPORT INFORMATION
  Report Type: Spontaneous
  Country: None (occurrence: US)
  Receive Date: 20150216
  Receipt Date: 20150216
  Transmission Date: 20150721
  Serious: No
  Sender: FDA-Public Use
  Company Number: US-ALLERGAN-1417538US

PATIENT
  Sex: Female

DRUGS (2)
  1. RESTASIS [Suspect]
     Active Substance: CYCLOSPORINE
     Dosage: 2 GTT, BID
     Route: 047
  2. RESTASIS [Suspect]
     Active Substance: CYCLOSPORINE
     Indication: DRY EYE
     Dosage: 2 GTT, BID
     Route: 047
     Dates: start: 20140801

REACTIONS (7)
  - Dry eye [Not Recovered/Not Resolved]
  - Eye pain [Recovering/Resolving]
  - Eye irritation [Not Recovered/Not Resolved]
  - Eye pruritus [Not Recovered/Not Resolved]
  - Vision blurred [Not Recovered/Not Resolved]
  - Corneal abrasion [Not Recovered/Not Resolved]
  - Ulcerative keratitis [Recovered/Resolved]
